FAERS Safety Report 8438797-6 (Version None)
Quarter: 2012Q2

REPORT INFORMATION
  Report Type: 
  Country: None (occurrence: None)
  Receive Date: 20120615
  Receipt Date: 20120604
  Transmission Date: 20120825
  Serious: Yes (Other)
  Sender: FDA-Public Use
  Company Number: US-ACCORD-013715

PATIENT
  Age: 55 Year
  Sex: Female
  Weight: 92.73 kg

DRUGS (6)
  1. METFORMIN HCL [Suspect]
     Indication: TYPE 2 DIABETES MELLITUS
     Dosage: INITIALLY RECEIVED 500MG TEICE DAILY INCREASED TO 1000 MG ORALLY TWICE DAILY.
     Route: 048
  2. EXENATIDE [Suspect]
     Indication: TYPE 2 DIABETES MELLITUS
     Dosage: EXENATIDE WAS INCREASED TO 10 UG SUBCUTANEOUSLY TWICE DAILY
     Route: 058
  3. LOSARTAN POTASSIUM [Concomitant]
     Indication: BLOOD PRESSURE
     Route: 048
  4. LISINOPRIL [Suspect]
     Indication: BLOOD PRESSURE
     Route: 048
  5. GLIPIZIDE [Suspect]
     Indication: TYPE 2 DIABETES MELLITUS
     Dosage: INITIALLY RECEIVED 2.5MG ONCE DAILY INCREASED TO 5 MG ORALLY 2/1 DAY THAN INCREASED TO 10 MG ORALLY
     Route: 048
  6. SITAGLIPTIN [Suspect]
     Indication: TYPE 2 DIABETES MELLITUS
     Route: 048

REACTIONS (3)
  - NON-ALCOHOLIC STEATOHEPATITIS [None]
  - COUGH [None]
  - HYPOGLYCAEMIA [None]
